FAERS Safety Report 16503501 (Version 1)
Quarter: 2019Q3

REPORT INFORMATION
  Report Type: Spontaneous
  Country: JP (occurrence: JP)
  Receive Date: 20190701
  Receipt Date: 20190701
  Transmission Date: 20191004
  Serious: Yes (Hospitalization, Other)
  Sender: FDA-Public Use
  Company Number: JP-SA-2019SA171562

PATIENT
  Age: 61 Year
  Sex: Male

DRUGS (2)
  1. CLOPIDOGREL BISULFATE. [Suspect]
     Active Substance: CLOPIDOGREL BISULFATE
     Indication: THROMBOCYTOSIS
     Dosage: 75 MG, QD
  2. ANAGRELIDE. [Concomitant]
     Active Substance: ANAGRELIDE HYDROCHLORIDE
     Indication: THROMBOCYTOSIS
     Dosage: 2 MG

REACTIONS (6)
  - Cardio-respiratory arrest [Unknown]
  - Leukocytosis [Recovered/Resolved]
  - Stenosis [Recovered/Resolved]
  - Chest pain [Unknown]
  - Electrocardiogram ST segment elevation [Unknown]
  - Thrombocytosis [Recovered/Resolved]
